FAERS Safety Report 6497838-6 (Version None)
Quarter: 2009Q4

REPORT INFORMATION
  Report Type: 
  Country: None (occurrence: None)
  Receive Date: 20091125
  Receipt Date: 20090311
  Transmission Date: 20100525
  Serious: Yes (Other)
  Sender: FDA-Public Use
  Company Number: 2009BH003295

PATIENT
  Age: 72 Year
  Sex: Male

DRUGS (5)
  1. DIANEAL [Suspect]
     Indication: PERITONEAL DIALYSIS
     Dosage: IP
     Route: 033
     Dates: start: 20080102
  2. DIANEAL [Suspect]
     Indication: PERITONEAL DIALYSIS
     Dosage: IP
     Route: 033
     Dates: start: 20080102
  3. VANCOMYCIN [Suspect]
     Indication: PERITONITIS
     Dosage: 1 GM 2 GM
     Dates: start: 20090201, end: 20090224
  4. VANCOMYCIN [Suspect]
     Indication: PERITONITIS
     Dosage: 1 GM 2 GM
     Dates: start: 20090224
  5. FORTAZ [Suspect]
     Indication: PERITONITIS
     Dates: start: 20090201, end: 20090201

REACTIONS (3)
  - MALAISE [None]
  - PERITONEAL DIALYSIS COMPLICATION [None]
  - PERITONITIS BACTERIAL [None]
